FAERS Safety Report 5830482-X (Version None)
Quarter: 2008Q3

REPORT INFORMATION
  Report Type: 
  Country: None (occurrence: None)
  Receive Date: 20080801
  Receipt Date: 20070606
  Transmission Date: 20090109
  Serious: No
  Sender: FDA-Public Use
  Company Number: US-BRISTOL-MYERS SQUIBB COMPANY-13805940

PATIENT
  Age: 77 Year
  Sex: Female
  Weight: 73 kg

DRUGS (7)
  1. COUMADIN [Suspect]
     Indication: PALPITATIONS
  2. CELEBREX [Concomitant]
  3. PROTONIX [Concomitant]
  4. CARDIZEM [Concomitant]
  5. ASPIRIN [Concomitant]
  6. LOVENOX [Concomitant]
  7. LEVOTHYROXINE SODIUM [Concomitant]

REACTIONS (1)
  - DIARRHOEA [None]
